FAERS Safety Report 9058335 (Version 1)
Quarter: 2013Q1

REPORT INFORMATION
  Report Type: Spontaneous
  Country: US (occurrence: US)
  Receive Date: 20130211
  Receipt Date: 20130211
  Transmission Date: 20140127
  Serious: Yes (Hospitalization)
  Sender: FDA-Public Use
  Company Number: US-JNJFOC-20130116958

PATIENT
  Sex: Female
  Weight: 158.76 kg

DRUGS (11)
  1. DURAGESIC [Suspect]
     Indication: MYELITIS TRANSVERSE
     Dosage: ONE 100 UG/HR AND ONE 50 UG/HR PATCHES
     Route: 062
     Dates: start: 2006
  2. ALLOPURINOL [Concomitant]
     Indication: GOUT
     Route: 065
  3. TRILEPTAL [Concomitant]
     Indication: MYELITIS TRANSVERSE
     Route: 065
  4. BACLOFEN [Concomitant]
     Indication: MUSCLE SPASMS
     Route: 065
  5. MONOPRIL [Concomitant]
     Indication: FLUID RETENTION
     Route: 065
  6. TORSEMIDE [Concomitant]
     Indication: FLUID RETENTION
     Route: 065
  7. LEXAPRO [Concomitant]
     Indication: ANTIDEPRESSANT THERAPY
     Route: 065
  8. LORAZEPAM [Concomitant]
     Indication: PANIC ATTACK
     Route: 065
  9. INSULIN [Concomitant]
     Indication: DIABETES MELLITUS
  10. METFORMIN [Concomitant]
     Indication: DIABETES MELLITUS
     Route: 065
  11. SINGULAIR [Concomitant]
     Route: 065

REACTIONS (4)
  - Urinary tract infection [Unknown]
  - Sleep apnoea syndrome [Not Recovered/Not Resolved]
  - Adverse drug reaction [Recovered/Resolved]
  - Inappropriate schedule of drug administration [Unknown]
